FAERS Safety Report 7165800-6 (Version None)
Quarter: 2010Q4

REPORT INFORMATION
  Report Type: 
  Country: None (occurrence: None)
  Receive Date: 20101215
  Receipt Date: 20091223
  Transmission Date: 20110411
  Serious: No
  Sender: FDA-Public Use
  Company Number: US-AMGEN-KDL382239

PATIENT

DRUGS (14)
  1. ENBREL [Suspect]
     Indication: PRODUCT USED FOR UNKNOWN INDICATION
     Dosage: 50 MG, QWK
     Route: 058
  2. METHOTREXATE [Concomitant]
     Dosage: 2.5 MG, UNK
  3. PREDNISONE [Concomitant]
     Dosage: 1 MG, UNK
  4. NABUMETONE [Concomitant]
     Dosage: 750 MG, UNK
  5. SIMVASTATIN [Concomitant]
     Dosage: 20 MG, UNK
  6. FOLIC ACID [Concomitant]
     Dosage: 1 MG, UNK
  7. HYDROCHLOROTHIAZIDE [Concomitant]
     Dosage: 25 MG, UNK
  8. TOCOPHEROL CONCENTRATE CAP [Concomitant]
     Dosage: 1000 IU, UNK
  9. POTASSIUM CHLORIDE [Concomitant]
     Dosage: UNK UNK, UNK
  10. ESTRADIOL [Concomitant]
     Dosage: 1 MG, UNK
  11. FISH OIL [Concomitant]
     Dosage: 1000 MG, UNK
  12. ERGOCALCIFEROL [Concomitant]
     Dosage: 2000 IU, UNK
  13. TYLENOL PM [Concomitant]
     Dosage: UNK UNK, UNK
  14. STOOL SOFTENER [Concomitant]
     Dosage: 100 MG, UNK

REACTIONS (4)
  - INJECTION SITE ERYTHEMA [None]
  - INJECTION SITE PRURITUS [None]
  - INJECTION SITE WARMTH [None]
  - NASAL CONGESTION [None]
